FAERS Safety Report 7471326-2 (Version None)
Quarter: 2011Q2

REPORT INFORMATION
  Report Type: 
  Country: None (occurrence: None)
  Receive Date: 20110510
  Receipt Date: 20091111
  Transmission Date: 20111010
  Serious: Yes (Other)
  Sender: FDA-Public Use
  Company Number: DE-GENENTECH-318219

PATIENT
  Age: 86 Year
  Sex: Female

DRUGS (1)
  1. LUCENTIS [Suspect]
     Indication: AGE-RELATED MACULAR DEGENERATION
     Dosage: UNK
     Route: 031
     Dates: start: 20090909

REACTIONS (9)
  - WEIGHT DECREASED [None]
  - BRONCHITIS CHRONIC [None]
  - PULMONARY OEDEMA [None]
  - EYE HAEMORRHAGE [None]
  - PAIN IN EXTREMITY [None]
  - VISUAL ACUITY REDUCED [None]
  - DEPRESSION [None]
  - OCULAR HYPERAEMIA [None]
  - RETINAL TEAR [None]
